FAERS Safety Report 19442097 (Version 1)
Quarter: 2021Q2

REPORT INFORMATION
  Report Type: Spontaneous
  Country: US (occurrence: US)
  Receive Date: 20210617
  Receipt Date: 20210617
  Transmission Date: 20210717
  Serious: Yes (Other)
  Sender: FDA-Public Use
  Company Number: None

PATIENT
  Age: 31 Year
  Sex: Female
  Weight: 55.79 kg

DRUGS (1)
  1. SUBOXONE [Suspect]
     Active Substance: BUPRENORPHINE HYDROCHLORIDE\NALOXONE HYDROCHLORIDE
     Indication: DRUG DEPENDENCE
     Dates: start: 20200707, end: 20200715

REACTIONS (8)
  - Vomiting [None]
  - Hyperhidrosis [None]
  - Muscle spasms [None]
  - Nausea [None]
  - Hyperactive pharyngeal reflex [None]
  - Eructation [None]
  - Chills [None]
  - Abdominal discomfort [None]

NARRATIVE: CASE EVENT DATE: 20200715
